FAERS Safety Report 5100872-1 (Version None)
Quarter: 2006Q3

REPORT INFORMATION
  Report Type: 
  Country: None (occurrence: None)
  Receive Date: 20060911
  Receipt Date: 20060905
  Transmission Date: 20061208
  Serious: Yes (Hospitalization)
  Sender: FDA-Public Use
  Company Number: FR-BAYER-200610824BFR

PATIENT
  Age: 83 Year
  Sex: Male

DRUGS (5)
  1. GLUCOR [Suspect]
     Indication: DIABETES MELLITUS
     Route: 048
     Dates: start: 19940715
  2. ALDACTONE [Suspect]
     Indication: ISCHAEMIC CARDIOMYOPATHY
     Dosage: TOTAL DAILY DOSE: 75 MG  UNIT DOSE: 75 MG
     Route: 048
     Dates: start: 19910715, end: 20060710
  3. ALDACTONE [Suspect]
     Dosage: TOTAL DAILY DOSE: 75 MG  UNIT DOSE: 75 MG
     Route: 048
     Dates: start: 20060701
  4. DAONIL [Suspect]
     Indication: DIABETES MELLITUS
     Route: 048
     Dates: start: 19910715, end: 20060713
  5. SECTRAL [Suspect]
     Indication: ISCHAEMIC CARDIOMYOPATHY
     Dosage: TOTAL DAILY DOSE: 200 MG  UNIT DOSE: 200 MG
     Route: 048
     Dates: start: 19910715

REACTIONS (2)
  - DEPRESSED LEVEL OF CONSCIOUSNESS [None]
  - HYPONATRAEMIA [None]
